FAERS Safety Report 25991088 (Version 2)
Quarter: 2025Q4

REPORT INFORMATION
  Report Type: Spontaneous
  Country: US (occurrence: US)
  Receive Date: 20251103
  Receipt Date: 20251104
  Transmission Date: 20260117
  Serious: Yes (Hospitalization)
  Sender: SCPHARMACEUTICALS
  Company Number: US-SCPHARMACEUTICALS-2025-SCPH-US000656

PATIENT

DRUGS (7)
  1. FUROSCIX [Suspect]
     Active Substance: FUROSEMIDE
     Indication: Oedema peripheral
     Dosage: UNK
     Route: 058
     Dates: start: 20250916, end: 20250916
  2. FUROSCIX [Suspect]
     Active Substance: FUROSEMIDE
     Dosage: UNK
     Route: 058
     Dates: start: 20250917, end: 20250917
  3. FUROSCIX [Suspect]
     Active Substance: FUROSEMIDE
     Dosage: UNK
     Route: 058
     Dates: start: 20250918, end: 20250918
  4. FUROSCIX [Suspect]
     Active Substance: FUROSEMIDE
     Dosage: UNK
     Route: 058
     Dates: start: 20250920, end: 20250920
  5. FUROSCIX [Suspect]
     Active Substance: FUROSEMIDE
     Dosage: UNK
     Route: 058
     Dates: start: 20250921, end: 20250921
  6. LASIX [Concomitant]
     Active Substance: FUROSEMIDE
     Indication: Product used for unknown indication
     Dosage: 20 MG, DAILY (EXCEPT THE DAYS SHE USES FUROSCIX)
     Route: 048
  7. LACTULOSE [Concomitant]
     Active Substance: LACTULOSE
     Indication: Hyperammonaemia
     Route: 065

REACTIONS (6)
  - Condition aggravated [Not Recovered/Not Resolved]
  - Renal impairment [Not Recovered/Not Resolved]
  - Pain in extremity [Not Recovered/Not Resolved]
  - Blister [Unknown]
  - Limb discomfort [Unknown]
  - Drug ineffective [Unknown]

NARRATIVE: CASE EVENT DATE: 20250916
